FAERS Safety Report 5050006-7 (Version None)
Quarter: 2006Q2

REPORT INFORMATION
  Report Type: 
  Country: None (occurrence: None)
  Receive Date: 20060614
  Receipt Date: 20060308
  Transmission Date: 20061013
  Serious: Yes (Hospitalization)
  Sender: FDA-Public Use
  Company Number: 439545

PATIENT
  Age: 81 Year
  Sex: Female

DRUGS (11)
  1. BONIVA [Suspect]
     Indication: OSTEOPOROSIS
     Dosage: 150 MG 1 PER 1 MONTH ORAL
     Route: 048
     Dates: start: 20051115
  2. ENBREL [Suspect]
     Indication: RHEUMATOID ARTHRITIS
     Dosage: 1 PER 1 WEEK
     Dates: start: 20051115, end: 20060227
  3. XOPENEX [Concomitant]
  4. ADVAIR DISKUS 100/50 [Concomitant]
  5. BECLOMETHASONE DIPROPIONATE [Concomitant]
  6. PREDNISONE TAB [Concomitant]
  7. NORVASC [Concomitant]
  8. NEXIUM [Concomitant]
  9. VIACTIV (CALCIUM CARBONATE/CHOLECALCIFEROL) [Concomitant]
  10. CALCIUM (CALCIUM) [Concomitant]
  11. GLUCOSAMINE (GLUCOSAMINE) [Concomitant]

REACTIONS (1)
  - BRONCHITIS [None]
